FAERS Safety Report 8441460-9 (Version None)
Quarter: 2012Q2

REPORT INFORMATION
  Report Type: 
  Country: None (occurrence: None)
  Receive Date: 20120615
  Receipt Date: 20120606
  Transmission Date: 20120825
  Serious: Yes (Hospitalization)
  Sender: FDA-Public Use
  Company Number: US-BAYER-2012-003342

PATIENT
  Age: 36 Year
  Sex: Female
  Weight: 88.889 kg

DRUGS (5)
  1. PROVENTIL [Concomitant]
     Indication: ASTHMA
  2. DROSPIRENONE AND ETHINYL ESTRADIOL [Suspect]
     Dosage: UNK
     Route: 048
     Dates: start: 20090901, end: 20100101
  3. YASMIN [Suspect]
     Dosage: UNK
     Dates: start: 20090901
  4. SYNTHROID [Concomitant]
     Indication: HYPOTHYROIDISM
  5. CYMBALTA [Concomitant]
     Indication: DEPRESSION

REACTIONS (4)
  - FEAR [None]
  - DEEP VEIN THROMBOSIS [None]
  - INJURY [None]
  - PAIN [None]
